FAERS Safety Report 4654561-8 (Version None)
Quarter: 2005Q2

REPORT INFORMATION
  Report Type: 
  Country: None (occurrence: None)
  Receive Date: 20050503
  Receipt Date: 20050503
  Transmission Date: 20051028
  Serious: Yes (Other)
  Sender: FDA-Public Use
  Company Number: None

PATIENT
  Age: 15 Year
  Sex: Female
  Weight: 45.3597 kg

DRUGS (2)
  1. ABILIFY [Suspect]
     Indication: INTERMITTENT EXPLOSIVE DISORDER
     Dates: start: 20050310, end: 20050319
  2. ABILIFY [Suspect]
     Indication: POST-TRAUMATIC STRESS DISORDER
     Dates: start: 20050310, end: 20050319

REACTIONS (4)
  - ACCOMMODATION DISORDER [None]
  - EXTRAPYRAMIDAL DISORDER [None]
  - MENTAL STATUS CHANGES [None]
  - VISION BLURRED [None]
